FAERS Safety Report 20608664 (Version 1)
Quarter: 2022Q1

REPORT INFORMATION
  Report Type: Report from Study
  Country: US (occurrence: US)
  Receive Date: 20220317
  Receipt Date: 20220317
  Transmission Date: 20220423
  Serious: Yes (Hospitalization, Congenital Anomaly, Other)
  Sender: FDA-Public Use
  Company Number: US-JNJFOC-20220327302

PATIENT
  Sex: Female

DRUGS (7)
  1. REMICADE [Suspect]
     Active Substance: INFLIXIMAB
     Indication: Product used for unknown indication
     Route: 064
  2. SIMPONI [Suspect]
     Active Substance: GOLIMUMAB
     Indication: Product used for unknown indication
     Route: 064
  3. ADALIMUMAB [Suspect]
     Active Substance: ADALIMUMAB
     Indication: Product used for unknown indication
     Route: 064
  4. ETANERCEPT [Suspect]
     Active Substance: ETANERCEPT
     Indication: Product used for unknown indication
     Route: 064
  5. CERTOLIZUMAB [Suspect]
     Active Substance: CERTOLIZUMAB
     Indication: Product used for unknown indication
     Route: 064
  6. VEDOLIZUMAB [Suspect]
     Active Substance: VEDOLIZUMAB
     Indication: Product used for unknown indication
     Route: 064
  7. ANAKINRA [Suspect]
     Active Substance: ANAKINRA
     Indication: Product used for unknown indication
     Route: 064

REACTIONS (8)
  - Foetal malformation [Unknown]
  - Premature baby [Unknown]
  - Intensive care [Unknown]
  - Foetal exposure during pregnancy [Unknown]
  - Apgar score low [Unknown]
  - Maternal exposure during breast feeding [Unknown]
  - Low birth weight baby [Unknown]
  - Small for dates baby [Unknown]
